FAERS Safety Report 4273481-4 (Version None)
Quarter: 2004Q1

REPORT INFORMATION
  Report Type: 
  Country: None (occurrence: None)
  Receive Date: 20040114
  Receipt Date: 20031229
  Transmission Date: 20041129
  Serious: Yes (Hospitalization)
  Sender: FDA-Public Use
  Company Number: 8004820

PATIENT
  Age: 46 Year
  Sex: Male

DRUGS (7)
  1. KEPPRA [Suspect]
     Indication: CONVULSION
     Dosage: 750 MG 2/D PO
     Route: 048
     Dates: start: 20031112, end: 20031219
  2. ZANTAC [Suspect]
     Indication: PROPHYLAXIS
     Dates: start: 20031201, end: 20031201
  3. DEPAKOTE [Concomitant]
  4. TRILEPTAL [Concomitant]
  5. DECADRON [Concomitant]
  6. REGLAN [Concomitant]
  7. CIPRO [Concomitant]

REACTIONS (6)
  - CONVULSION [None]
  - HAEMATOCRIT DECREASED [None]
  - MENTAL STATUS CHANGES [None]
  - PNEUMONITIS [None]
  - RESPIRATORY DISORDER [None]
  - THROMBOCYTOPENIA [None]
